FAERS Safety Report 6851853-9 (Version None)
Quarter: 2010Q3

REPORT INFORMATION
  Report Type: 
  Country: None (occurrence: None)
  Receive Date: 20100717
  Receipt Date: 20071030
  Transmission Date: 20110219
  Serious: Yes (Hospitalization, Other)
  Sender: FDA-Public Use
  Company Number: US-PFIZER INC-2007092409

PATIENT
  Sex: Female
  Weight: 74.09 kg

DRUGS (5)
  1. CHANTIX [Suspect]
     Indication: SMOKING CESSATION THERAPY
     Dates: start: 20070901, end: 20071003
  2. LANTUS [Concomitant]
  3. GLIMEPIRIDE [Concomitant]
  4. ACTOS [Concomitant]
  5. ACETYLSALICYLIC ACID [Concomitant]

REACTIONS (2)
  - CONSTIPATION [None]
  - HEART RATE DECREASED [None]
